FAERS Safety Report 18523205 (Version 2)
Quarter: 2021Q2

REPORT INFORMATION
  Report Type: Spontaneous
  Country: US (occurrence: US)
  Receive Date: 20201119
  Receipt Date: 20210408
  Transmission Date: 20210717
  Serious: Yes (Disabling, Other)
  Sender: FDA-Public Use
  Company Number: US-SA-2020SA330185

PATIENT
  Age: 59 Year
  Sex: Female

DRUGS (3)
  1. PREDNISONE. [Suspect]
     Active Substance: PREDNISONE
     Route: 048
  2. MITOMYCIN C [Concomitant]
     Active Substance: MITOMYCIN
     Dosage: UNK
  3. TRIAMCINOLONE ACETONIDE. [Suspect]
     Active Substance: TRIAMCINOLONE ACETONIDE
     Dosage: SUBTENONS

REACTIONS (9)
  - Retinal exudates [Recovering/Resolving]
  - Rhegmatogenous retinal detachment [Recovering/Resolving]
  - Tractional retinal detachment [Recovering/Resolving]
  - Eye infection toxoplasmal [Recovering/Resolving]
  - Pupillary reflex impaired [Recovering/Resolving]
  - Vitreous floaters [Recovering/Resolving]
  - Blindness [Not Recovered/Not Resolved]
  - Eye pain [Recovering/Resolving]
  - Vitreous haze [Recovering/Resolving]
